FAERS Safety Report 25924818 (Version 1)
Quarter: 2025Q4

REPORT INFORMATION
  Report Type: Spontaneous
  Country: US (occurrence: US)
  Receive Date: 20251015
  Receipt Date: 20251015
  Transmission Date: 20260118
  Serious: Yes (Other)
  Sender: DR REDDYS
  Company Number: US-DRL-USA-USA/2025/10/015575

PATIENT
  Sex: Female

DRUGS (2)
  1. DOFETILIDE [Suspect]
     Active Substance: DOFETILIDE
     Indication: Atrial fibrillation
     Dosage: 2 DOSES
  2. MEXILETINE [Suspect]
     Active Substance: MEXILETINE
     Indication: Atrial fibrillation
     Dosage: 2 DOSES

REACTIONS (2)
  - Electrocardiogram QT prolonged [Unknown]
  - Incorrect dose administered [Unknown]
